FAERS Safety Report 10862739 (Version 1)
Quarter: 2015Q1

REPORT INFORMATION
  Report Type: Spontaneous
  Country: US (occurrence: None)
  Receive Date: 20150219
  Receipt Date: 20150219
  Transmission Date: 20150721
  Serious: Yes (Hospitalization)
  Sender: FDA-Public Use
  Company Number: 2015ST000027

PATIENT
  Age: 47 Year
  Sex: Female

DRUGS (1)
  1. UCERIS [Suspect]
     Active Substance: BUDESONIDE
     Indication: COLITIS ULCERATIVE
     Route: 048

REACTIONS (2)
  - White blood cell count abnormal [None]
  - Cough [None]

NARRATIVE: CASE EVENT DATE: 20150208
